FAERS Safety Report 8658878 (Version 2)
Quarter: 2015Q2

REPORT INFORMATION
  Report Type: Other
  Country: IT (occurrence: IT)
  Receive Date: 20120710
  Receipt Date: 20150428
  Transmission Date: 20150821
  Serious: Yes (Other)
  Sender: FDA-Public Use
  Company Number: IT-ACTELION-A-CH2012-68177

PATIENT
  Age: 13 Year
  Sex: Female

DRUGS (2)
  1. ZAVESCA [Suspect]
     Active Substance: MIGLUSTAT
     Dosage: 83 MG, TID
     Route: 048
     Dates: start: 20070514
  2. ZAVESCA [Suspect]
     Active Substance: MIGLUSTAT
     Indication: NIEMANN-PICK DISEASE
     Dosage: UNK MG, UNK
     Route: 048

REACTIONS (7)
  - No therapeutic response [Unknown]
  - Wheelchair user [Unknown]
  - Activities of daily living impaired [Unknown]
  - Communication disorder [Unknown]
  - Condition aggravated [Unknown]
  - Seizure [Unknown]
  - Dysphagia [Unknown]
